FAERS Safety Report 4561819-X (Version None)
Quarter: 2005Q1

REPORT INFORMATION
  Report Type: 
  Country: None (occurrence: None)
  Receive Date: 20050126
  Receipt Date: 20050112
  Transmission Date: 20050727
  Serious: Yes (Other)
  Sender: FDA-Public Use
  Company Number: GB-MERCK-0501GBR00141

PATIENT
  Age: 58 Year

DRUGS (3)
  1. FOSAMAX [Suspect]
     Indication: NEUROPATHIC ARTHROPATHY
     Route: 048
     Dates: start: 20041216
  2. LOSARTAN POTASSIUM [Concomitant]
     Route: 048
  3. INSULIN [Concomitant]
     Route: 065

REACTIONS (2)
  - BLINDNESS UNILATERAL [None]
  - VITREOUS HAEMORRHAGE [None]
